FAERS Safety Report 9432316 (Version 2)
Quarter: 2013Q3

REPORT INFORMATION
  Report Type: Report from Study
  Country: US (occurrence: US)
  Receive Date: 20130731
  Receipt Date: 20130826
  Transmission Date: 20140515
  Serious: Yes (Hospitalization)
  Sender: FDA-Public Use
  Company Number: US-SANOFI-AVENTIS-2013SA064961

PATIENT
  Age: 63 Year
  Sex: Male
  Weight: 64.1 kg

DRUGS (17)
  1. JEVTANA [Suspect]
     Route: 065
     Dates: end: 20130708
  2. ZITHROMAX [Concomitant]
     Dosage: D5W 250ML IVPB 500MG
     Route: 042
     Dates: start: 20130622, end: 20130629
  3. DEXTROSE [Concomitant]
     Indication: HYPOGLYCAEMIA
     Dosage: 10% 250ML (D50 SHORTAGE) 250 ML
     Route: 042
     Dates: start: 20130622, end: 20130712
  4. GLUCOSE [Concomitant]
     Indication: BLOOD GLUCOSE
     Dosage: 16-32 G?CHEWABLE
     Route: 048
     Dates: start: 20130622, end: 20130722
  5. GLUCAGEN [Concomitant]
     Indication: BLOOD GLUCOSE
     Route: 030
     Dates: start: 20130622, end: 20130722
  6. HEPARIN [Concomitant]
     Dosage: DOSE:5000 UNIT(S)
     Route: 058
     Dates: start: 20130622, end: 20130702
  7. NOVOLOG [Concomitant]
     Dosage: 3-7 UNITS
     Route: 058
     Dates: start: 20130622, end: 20130722
  8. ALBUTEROL W/IPRATROPIUM [Concomitant]
     Dosage: 1 VIAL NEBULIZER?0.5-2.5 MG PER 3 ML NEBULIZER SOLUTION 3 ML
     Dates: start: 20130623, end: 20130625
  9. MAGNESIUM SULFATE [Concomitant]
     Dosage: 1 G IN NORMAL SALINE 50 ML 2 G
     Route: 042
     Dates: start: 20130625, end: 20130625
  10. POTASSIUM CHLORIDE [Concomitant]
     Route: 042
     Dates: start: 20130625, end: 20130625
  11. SODIUM CHLORIDE [Concomitant]
     Dosage: INFUSION
     Route: 042
     Dates: start: 20130625, end: 20130625
  12. VANCOCIN [Concomitant]
     Dosage: D5W IVPB FROZEN 1000MG
     Route: 042
     Dates: start: 20130624, end: 20130701
  13. ROCEPHIN [Concomitant]
     Route: 042
     Dates: start: 20130623, end: 20130624
  14. PEPCID [Concomitant]
     Route: 048
     Dates: start: 20130623, end: 20130625
  15. GLUCOPHAGE [Concomitant]
     Route: 048
     Dates: start: 20130624, end: 20130625
  16. K-DUR [Concomitant]
     Route: 048
     Dates: start: 20130624, end: 20130624
  17. NOVOLIN R [Concomitant]
     Dosage: DOSE:6 UNIT(S)
     Route: 042
     Dates: start: 20130622, end: 20130622

REACTIONS (10)
  - Pneumonia [Unknown]
  - Syncope [Unknown]
  - Respiratory distress [Unknown]
  - Diabetic ketoacidosis [Unknown]
  - Device related infection [Unknown]
  - Sepsis [Unknown]
  - Pyrexia [Unknown]
  - Hypotension [Unknown]
  - Thrombocytopenia [Unknown]
  - Neck mass [Unknown]
